FAERS Safety Report 19017200 (Version 2)
Quarter: 2021Q1

REPORT INFORMATION
  Report Type: Spontaneous
  Country: CH (occurrence: CH)
  Receive Date: 20210316
  Receipt Date: 20210319
  Transmission Date: 20210420
  Serious: Yes (Other)
  Sender: FDA-Public Use
  Company Number: CH-ROCHE-2783162

PATIENT
  Age: 57 Year
  Sex: Female
  Weight: 67 kg

DRUGS (13)
  1. ACTEMRA [Suspect]
     Active Substance: TOCILIZUMAB
     Indication: STILL^S DISEASE
  2. CICLOSPORIN [Suspect]
     Active Substance: CYCLOSPORINE
     Route: 048
     Dates: start: 20210219, end: 20210223
  3. CICLOSPORIN [Suspect]
     Active Substance: CYCLOSPORINE
     Route: 048
     Dates: start: 20210223
  4. SOLU?MEDROL [Suspect]
     Active Substance: METHYLPREDNISOLONE SODIUM SUCCINATE
     Dosage: DOSE?1000MG / D
     Route: 042
     Dates: start: 20210218, end: 20210220
  5. SOLU?MEDROL [Suspect]
     Active Substance: METHYLPREDNISOLONE SODIUM SUCCINATE
     Dosage: DOSE?1000MG / D
     Route: 048
     Dates: start: 20210218, end: 20210220
  6. CICLOSPORIN [Suspect]
     Active Substance: CYCLOSPORINE
     Route: 048
     Dates: start: 20210218
  7. LISINOPRIL. [Concomitant]
     Active Substance: LISINOPRIL
  8. ACTEMRA [Suspect]
     Active Substance: TOCILIZUMAB
     Indication: HAEMOPHAGOCYTIC LYMPHOHISTIOCYTOSIS
     Dosage: 26/FEB/2021
     Route: 042
     Dates: start: 20210219
  9. SOLU?MEDROL [Suspect]
     Active Substance: METHYLPREDNISOLONE SODIUM SUCCINATE
     Indication: PRODUCT USED FOR UNKNOWN INDICATION
     Route: 065
     Dates: start: 20210216, end: 20210218
  10. CICLOSPORIN [Suspect]
     Active Substance: CYCLOSPORINE
     Indication: PRODUCT USED FOR UNKNOWN INDICATION
     Dosage: 3MG / KG
     Route: 048
     Dates: start: 20210218
  11. PIPERACILLIN AND TAZOBACTAM [Concomitant]
     Active Substance: PIPERACILLIN SODIUM\TAZOBACTAM SODIUM
     Dates: start: 20210218, end: 20210224
  12. PREDNISONE. [Concomitant]
     Active Substance: PREDNISONE
     Dates: start: 20210215, end: 20210316
  13. TAZOBACTAM [Concomitant]
     Active Substance: TAZOBACTAM
     Dates: start: 20210218, end: 20210224

REACTIONS (4)
  - Atrial fibrillation [Unknown]
  - Oral herpes [Recovered/Resolved]
  - Cardiac failure [Unknown]
  - Immunosuppression [Recovered/Resolved]

NARRATIVE: CASE EVENT DATE: 20210223
